FAERS Safety Report 6353143-X (Version None)
Quarter: 2009Q3

REPORT INFORMATION
  Report Type: 
  Country: None (occurrence: None)
  Receive Date: 20090912
  Receipt Date: 20090622
  Transmission Date: 20100115
  Serious: No
  Sender: FDA-Public Use
  Company Number: US-ABBOTT-08P-163-0453990-00

PATIENT
  Sex: Male
  Weight: 86.26 kg

DRUGS (10)
  1. HUMIRA [Suspect]
     Indication: RHEUMATOID ARTHRITIS
     Route: 058
     Dates: start: 20060801
  2. HUMIRA [Suspect]
     Indication: OSTEOARTHRITIS
  3. ROPINIROLE HYDROCHLORIDE [Concomitant]
     Indication: PARKINSON'S DISEASE
     Dosage: 5 MG DAILY
  4. RASAGILINE MESYLATE [Concomitant]
     Indication: PARKINSON'S DISEASE
     Dosage: 1 MG DAILY
  5. BUSPIRONE HCL [Concomitant]
     Indication: PARKINSON'S DISEASE
     Dosage: 15 MG DAILY
     Route: 048
  6. SINEMET [Concomitant]
     Indication: PARKINSON'S DISEASE
     Dosage: 25/100 ONCE A DAY
     Route: 048
  7. LEFLUNOMIDE [Concomitant]
     Indication: RHEUMATOID ARTHRITIS
  8. ESOMEPRAZOLE MAGNESIUM [Concomitant]
     Indication: GASTROOESOPHAGEAL REFLUX DISEASE
     Route: 048
  9. BENZTROPINE MESYLATE [Concomitant]
     Indication: PARKINSON'S DISEASE
     Dosage: 1 MG DAILY
     Route: 048
  10. LEFLUNOMIDE [Concomitant]
     Dosage: 20 MG DAILY
     Route: 048

REACTIONS (3)
  - DRUG DELIVERY SYSTEM MALFUNCTION [None]
  - INCORRECT DOSE ADMINISTERED [None]
  - INJECTION SITE PAIN [None]
